FAERS Safety Report 9316128 (Version 1)
Quarter: 2013Q2

REPORT INFORMATION
  Report Type: Report from Study
  Country: JP (occurrence: JP)
  Receive Date: 20130530
  Receipt Date: 20130530
  Transmission Date: 20140414
  Serious: Yes (Hospitalization)
  Sender: FDA-Public Use
  Company Number: JP-ROCHE-1228025

PATIENT
  Age: 54 Year
  Sex: Male
  Weight: 54.25 kg

DRUGS (25)
  1. OMALIZUMAB [Suspect]
     Indication: ASTHMA
     Route: 058
     Dates: start: 20090629, end: 20091225
  2. OMALIZUMAB [Suspect]
     Route: 058
     Dates: start: 20090928
  3. OMALIZUMAB [Suspect]
     Route: 058
     Dates: start: 20091106
  4. OMALIZUMAB [Suspect]
     Route: 058
     Dates: start: 20091207, end: 20091225
  5. ONON [Concomitant]
  6. MUCOSOLVAN [Concomitant]
  7. POTASSIUM CHLORIDE [Concomitant]
     Route: 065
     Dates: start: 20090624
  8. POTASSIUM CHLORIDE [Concomitant]
     Route: 065
     Dates: end: 20090712
  9. BECLOMETASONE DIPROPIONATE [Concomitant]
  10. HOKUNALIN [Concomitant]
     Route: 065
     Dates: start: 20090413
  11. SEREVENT [Concomitant]
     Route: 065
     Dates: start: 20090414
  12. THEOLONG [Concomitant]
  13. ZYLORIC [Concomitant]
  14. HERBESSER R [Concomitant]
  15. MUCODYNE [Concomitant]
  16. ALINAMIN F [Concomitant]
  17. DASEN [Concomitant]
     Route: 065
     Dates: start: 20090831
  18. MAGNESIUM OXIDE [Concomitant]
  19. HALCION [Concomitant]
  20. ZITHROMAX [Concomitant]
     Route: 065
     Dates: start: 20091102
  21. SPIRIVA [Concomitant]
  22. ACETYLCYSTEINE [Concomitant]
  23. ROHYPNOL [Concomitant]
     Route: 065
     Dates: start: 20090929, end: 20091018
  24. CLARITH [Concomitant]
     Route: 065
     Dates: start: 20091203
  25. GASTER D [Concomitant]
     Route: 065
     Dates: start: 20091029

REACTIONS (4)
  - Diffuse panbronchiolitis [Recovered/Resolved]
  - Infection [Recovered/Resolved]
  - White blood cell count increased [Unknown]
  - Pyrexia [Unknown]
